FAERS Safety Report 6100941-3 (Version None)
Quarter: 2009Q1

REPORT INFORMATION
  Report Type: 
  Country: None (occurrence: None)
  Receive Date: 20090226
  Receipt Date: 20090218
  Transmission Date: 20090719
  Serious: Yes (Life-Threatening, Hospitalization)
  Sender: FDA-Public Use
  Company Number: WAES 0902USA02364

PATIENT
  Age: 73 Year
  Sex: Male

DRUGS (17)
  1. ZETIA [Suspect]
     Indication: HYPERCHOLESTEROLAEMIA
     Dosage: 10 MG/DAILY, PO
     Route: 048
     Dates: start: 20080604, end: 20090206
  2. ZOCOR [Suspect]
     Indication: HYPERCHOLESTEROLAEMIA
     Dosage: 20 MG/DAILY, PO
     Route: 048
     Dates: start: 20080604, end: 20090206
  3. ACTOS [Concomitant]
  4. AMLODIPINE [Concomitant]
  5. AZUNOL [Concomitant]
  6. ASPIRIN [Concomitant]
  7. ELAVIL [Concomitant]
  8. HACHIMI-JIO-GAN [Concomitant]
  9. HYPEN [Concomitant]
  10. LENDORMIN [Concomitant]
  11. MICARDIS [Concomitant]
  12. NITOROL-R [Concomitant]
  13. NITROPEN [Concomitant]
  14. SPELEAR [Concomitant]
  15. TAKEPRON [Concomitant]
  16. TALION [Concomitant]
  17. URIEF [Concomitant]

REACTIONS (1)
  - AORTIC DISSECTION [None]
